FAERS Safety Report 6729930-2 (Version None)
Quarter: 2010Q2

REPORT INFORMATION
  Report Type: 
  Country: None (occurrence: None)
  Receive Date: 20100513
  Receipt Date: 20100430
  Transmission Date: 20101027
  Serious: Yes (Hospitalization)
  Sender: FDA-Public Use
  Company Number: 1000005843

PATIENT
  Age: 76 Year
  Sex: Male

DRUGS (11)
  1. NEBIVOLOL HCL [Suspect]
     Indication: HYPERTENSION
     Dosage: 5 MG (5 MG,1 IN 1 D), ORAL
     Route: 048
  2. NEBIVOLOL HCL [Suspect]
     Indication: HYPERTENSION
     Dosage: (1 IN 1 D), ORAL
     Route: 048
     Dates: start: 20090312
  3. ESCITALOPRAM OXALATE [Suspect]
     Dosage: 20 MG (20 MG,1 IN 1 D), ORAL
     Route: 048
  4. FUROSEMIDE [Suspect]
     Indication: HYPERTENSION
     Dosage: 20 MG (20 MG,1 IN 1 D), ORAL
     Route: 048
  5. ODRIK [Suspect]
     Indication: HYPERTENSION
     Dosage: 2 MG (2 MG, 1 IN 1 D), ORAL
     Route: 048
  6. TOPALGIC [Suspect]
     Dosage: 200 MG (200 MG,1 IN 1 D), ORAL
     Route: 048
  7. DIFFU K [Concomitant]
  8. ASPEGIC 1000 [Concomitant]
  9. CRESTOR [Concomitant]
  10. PREVISCAN [Concomitant]
  11. FORLAX [Concomitant]

REACTIONS (22)
  - AGITATION [None]
  - AMYOTROPHY [None]
  - BALANCE DISORDER [None]
  - BILIARY DILATATION [None]
  - BRADYCARDIA [None]
  - CHOLELITHIASIS [None]
  - DECREASED APPETITE [None]
  - DEHYDRATION [None]
  - DELUSION [None]
  - DISEASE COMPLICATION [None]
  - DRUG INTERACTION [None]
  - DYSURIA [None]
  - FALL [None]
  - GENERAL PHYSICAL HEALTH DETERIORATION [None]
  - HUMERUS FRACTURE [None]
  - MEMORY IMPAIRMENT [None]
  - NERVOUS SYSTEM DISORDER [None]
  - NO THERAPEUTIC RESPONSE [None]
  - ORTHOSTATIC HYPOTENSION [None]
  - TREMOR [None]
  - URINARY INCONTINENCE [None]
  - URINARY RETENTION [None]
